FAERS Safety Report 23087856 (Version 2)
Quarter: 2024Q1

REPORT INFORMATION
  Report Type: Spontaneous
  Country: US (occurrence: US)
  Receive Date: 20231020
  Receipt Date: 20240119
  Transmission Date: 20240410
  Serious: No
  Sender: FDA-Public Use
  Company Number: US-Blueprint Medicines Corporation-1594

PATIENT
  Sex: Female

DRUGS (2)
  1. AYVAKIT [Suspect]
     Active Substance: AVAPRITINIB
     Indication: Systemic mastocytosis
     Route: 065
     Dates: start: 20230921
  2. AYVAKIT [Suspect]
     Active Substance: AVAPRITINIB
     Route: 065
     Dates: start: 20230921

REACTIONS (7)
  - Somnolence [Unknown]
  - Fatigue [Unknown]
  - Pain [Unknown]
  - Neuralgia [Unknown]
  - Anxiety [Unknown]
  - Nausea [Unknown]
  - Unevaluable event [Unknown]
